FAERS Safety Report 9026646 (Version 2)
Quarter: 2013Q1

REPORT INFORMATION
  Report Type: Spontaneous
  Country: DE (occurrence: None)
  Receive Date: 20130104
  Receipt Date: 20130111
  Transmission Date: 20140127
  Serious: Yes (Death)
  Sender: FDA-Public Use
  Company Number: 2012034328

PATIENT
  Age: 72 Year
  Sex: Male

DRUGS (5)
  1. PRIVIGEN (IMMUNE GLOBULIN INTRAVENOUS (HUMAN) 10% LIQUID) [Suspect]
     Indication: HYPOGAMMAGLOBULINAEMIA
     Dosage: INFUSION RATE: 100/60 ML/MIN
     Route: 042
     Dates: start: 20120515, end: 20120515
  2. CHEMOTHERAPEUTICS NOS (CHEMOTHERAPEUTICS NOS) [Concomitant]
  3. PACLITAXEL (PACLITAXEL) [Concomitant]
  4. ANTIBIOTICS (ANTIBIOTICS) [Concomitant]
  5. OTHER ANTIMYCOTICS FOR SYSTEMIC USE (OTHER ANTIMYCOTICS FOR SYSTEMIC USE) [Concomitant]

REACTIONS (1)
  - Hepatic failure [None]
